FAERS Safety Report 13011446 (Version 4)
Quarter: 2019Q4

REPORT INFORMATION
  Report Type: Spontaneous
  Country: US (occurrence: US)
  Receive Date: 20161209
  Receipt Date: 20191018
  Transmission Date: 20200122
  Serious: No
  Sender: FDA-Public Use
  Company Number: US-009507513-1612USA002167

PATIENT
  Age: 66 Year
  Sex: Male
  Weight: 107.98 kg

DRUGS (4)
  1. DECADRON [Suspect]
     Active Substance: DEXAMETHASONE
     Dosage: 3 MG, 4X/DAY (EVERY SIX HOURS)
     Route: 042
     Dates: start: 20161022, end: 20161023
  2. PRINIVIL [Concomitant]
     Active Substance: LISINOPRIL
     Indication: HYPERTENSION
     Dosage: 20 MG, QD
     Route: 048
     Dates: start: 20160729
  3. DECADRON [Suspect]
     Active Substance: DEXAMETHASONE
     Indication: SPINAL CORD OEDEMA
     Dosage: 4 MG, 4X/DAY (EVERY SIX HOURS)
     Route: 042
     Dates: start: 20161013, end: 20161021
  4. TRAMADOL HYDROCHLORIDE. [Concomitant]
     Active Substance: TRAMADOL HYDROCHLORIDE
     Indication: NECK PAIN
     Dosage: 100 MG, AS NEEDED
     Dates: start: 20160729, end: 20161012

REACTIONS (1)
  - Hyperglycaemia [Recovered/Resolved]

NARRATIVE: CASE EVENT DATE: 20161013
